FAERS Safety Report 6129765-8 (Version None)
Quarter: 2009Q1

REPORT INFORMATION
  Report Type: 
  Country: None (occurrence: None)
  Receive Date: 20090324
  Receipt Date: 20090317
  Transmission Date: 20090719
  Serious: Yes (Other)
  Sender: FDA-Public Use
  Company Number: B0566391A

PATIENT
  Age: 32 Year
  Sex: Female

DRUGS (1)
  1. MALARONE [Suspect]

REACTIONS (4)
  - INFLUENZA [None]
  - LEUKAEMIA [None]
  - LEUKOPENIA [None]
  - MALAISE [None]
